FAERS Safety Report 18691933 (Version 1)
Quarter: 2021Q1

REPORT INFORMATION
  Report Type: Report from Study
  Country: CO (occurrence: CO)
  Receive Date: 20210102
  Receipt Date: 20210102
  Transmission Date: 20210419
  Serious: Yes (Death, Hospitalization, Other)
  Sender: FDA-Public Use
  Company Number: CO-SHIRE-CO202023075

PATIENT
  Age: 5 Year
  Sex: Male
  Weight: 9 kg

DRUGS (2)
  1. HUMAN IMMUNOGLOBULIN; HYALURONIDASE [Suspect]
     Active Substance: HUMAN IMMUNOGLOBULIN G\HYALURONIDASE RECOMBINANT HUMAN
     Indication: PRIMARY IMMUNODEFICIENCY SYNDROME
     Dosage: 100 MILLIGRAM
     Route: 058
  2. HUMAN IMMUNOGLOBULIN; HYALURONIDASE [Suspect]
     Active Substance: HUMAN IMMUNOGLOBULIN G\HYALURONIDASE RECOMBINANT HUMAN
     Dosage: 0.8 KILOGRAM
     Route: 042
     Dates: end: 20201229

REACTIONS (3)
  - Anuria [Recovering/Resolving]
  - Primary immunodeficiency syndrome [Fatal]
  - Testicular oedema [Recovering/Resolving]

NARRATIVE: CASE EVENT DATE: 20200714
